FAERS Safety Report 10754072 (Version 1)
Quarter: 2015Q1

REPORT INFORMATION
  Report Type: Spontaneous
  Country: US (occurrence: US)
  Receive Date: 20150202
  Receipt Date: 20150202
  Transmission Date: 20150721
  Serious: Yes (Hospitalization, Other)
  Sender: FDA-Public Use
  Company Number: US-PFIZER INC-2015036625

PATIENT
  Sex: Female

DRUGS (1)
  1. LYRICA [Suspect]
     Active Substance: PREGABALIN
     Indication: FIBROMYALGIA
     Dosage: UNK

REACTIONS (26)
  - Neuropathy peripheral [Unknown]
  - Spinal pain [Unknown]
  - Pain [Unknown]
  - Sleep disorder [Recovered/Resolved]
  - Hypoaesthesia [Unknown]
  - Depression [Unknown]
  - Feeling abnormal [Unknown]
  - Anxiety [Unknown]
  - Activities of daily living impaired [Unknown]
  - Pelvic pain [Unknown]
  - Muscle spasms [Recovered/Resolved]
  - Temporomandibular joint syndrome [Unknown]
  - Memory impairment [Unknown]
  - Urinary incontinence [Unknown]
  - Fatigue [Unknown]
  - Stress [Unknown]
  - Migraine [Recovered/Resolved]
  - Paraesthesia [Unknown]
  - Vomiting [Unknown]
  - Visual impairment [Unknown]
  - Apathy [Unknown]
  - Oedema [Unknown]
  - Constipation [Unknown]
  - Neck pain [Unknown]
  - Hyperhidrosis [Unknown]
  - Laziness [Unknown]
